FAERS Safety Report 20562302 (Version 1)
Quarter: 2022Q1

REPORT INFORMATION
  Report Type: Spontaneous
  Country: DE (occurrence: DE)
  Receive Date: 20220307
  Receipt Date: 20220307
  Transmission Date: 20220423
  Serious: Yes (Hospitalization)
  Sender: FDA-Public Use
  Company Number: DE-002147023-PHNU2002DE01606

PATIENT
  Age: 28 Year
  Sex: Male
  Weight: 77 kg

DRUGS (6)
  1. CLOZAPINE [Suspect]
     Active Substance: CLOZAPINE
     Indication: Product used for unknown indication
     Dosage: 100 MG, ONCE/SINGLE
     Route: 048
     Dates: start: 20020506, end: 20020506
  2. RISPERDAL [Concomitant]
     Active Substance: RISPERIDONE
     Indication: Schizophrenia
     Dosage: 1 MILLIGRAM, BID
     Route: 048
     Dates: end: 20020506
  3. DIAZEPAM [Concomitant]
     Active Substance: DIAZEPAM
     Indication: Schizophrenia
     Dosage: 5 MG, BID
     Route: 048
     Dates: end: 20020506
  4. MELPERONE [Concomitant]
     Active Substance: MELPERONE
     Indication: Schizophrenia
     Dosage: UNKNOWN
     Route: 048
     Dates: end: 20020506
  5. Propra ratiopharm [Concomitant]
     Indication: Product used for unknown indication
     Dosage: 40 MILLIGRAM, ONCE
     Route: 065
     Dates: start: 20020506, end: 20020506
  6. PANTOZOL [Concomitant]
     Active Substance: PANTOPRAZOLE SODIUM
     Indication: Product used for unknown indication
     Dosage: 20 MG, ONCE/SINGLE
     Route: 048
     Dates: start: 20020506, end: 20020506

REACTIONS (3)
  - Fatigue [Recovered/Resolved]
  - Accidental exposure to product [Unknown]
  - Medication error [Recovered/Resolved]

NARRATIVE: CASE EVENT DATE: 20020506
